FAERS Safety Report 23544439 (Version 3)
Quarter: 2024Q2

REPORT INFORMATION
  Report Type: Report from Study
  Country: DE (occurrence: DE)
  Receive Date: 20240220
  Receipt Date: 20240415
  Transmission Date: 20240716
  Serious: Yes (Hospitalization)
  Sender: FDA-Public Use
  Company Number: DE-JNJFOC-20240229213

PATIENT
  Age: 46 Year
  Sex: Female
  Weight: 80 kg

DRUGS (2)
  1. ESKETAMINE [Suspect]
     Active Substance: ESKETAMINE
     Indication: Depression
     Dosage: BASE LINE-56MG, STOP-84 MG
     Dates: start: 20240109, end: 20240207
  2. ESKETAMINE [Concomitant]
     Active Substance: ESKETAMINE
     Route: 065
     Dates: start: 202402

REACTIONS (2)
  - Injury [Recovered/Resolved]
  - Psychological trauma [Recovered/Resolved]

NARRATIVE: CASE EVENT DATE: 20240202
